FAERS Safety Report 25414288 (Version 2)
Quarter: 2025Q2

REPORT INFORMATION
  Report Type: Spontaneous
  Country: US (occurrence: US)
  Receive Date: 20250609
  Receipt Date: 20250615
  Transmission Date: 20250716
  Serious: No
  Sender: SANOFI AVENTIS
  Company Number: US-SA-2025SA158462

PATIENT
  Age: 54 Year
  Sex: Male

DRUGS (2)
  1. ELOCTATE [Suspect]
     Active Substance: EFMOROCTOCOG ALFA
     Indication: Haemorrhage
     Route: 042
  2. ELOCTATE [Suspect]
     Active Substance: EFMOROCTOCOG ALFA
     Indication: Haemorrhage
     Route: 042

REACTIONS (6)
  - Haemorrhage [Recovering/Resolving]
  - Joint stiffness [Not Recovered/Not Resolved]
  - Arthralgia [Not Recovered/Not Resolved]
  - Anxiety [Unknown]
  - Weight fluctuation [Unknown]
  - Arthropod bite [Unknown]

NARRATIVE: CASE EVENT DATE: 20250528
